FAERS Safety Report 17096985 (Version 1)
Quarter: 2019Q4

REPORT INFORMATION
  Report Type: Spontaneous
  Country: US (occurrence: US)
  Receive Date: 20191102
  Receipt Date: 20191102
  Transmission Date: 20200122
  Serious: Yes (Hospitalization)
  Sender: FDA-Public Use
  Company Number: None

PATIENT
  Age: 19 Year
  Sex: Female
  Weight: 70.3 kg

DRUGS (2)
  1. MERCAPTOPURINE. [Suspect]
     Active Substance: MERCAPTOPURINE
     Dates: end: 20191026
  2. METHOTREXATE. [Suspect]
     Active Substance: METHOTREXATE
     Dates: end: 20191026

REACTIONS (6)
  - Oral viral infection [None]
  - Aphthous ulcer [None]
  - Oral pain [None]
  - Oral disorder [None]
  - Leukoplakia [None]
  - Stomatitis [None]

NARRATIVE: CASE EVENT DATE: 20191027
